FAERS Safety Report 7492884-8 (Version None)
Quarter: 2011Q2

REPORT INFORMATION
  Report Type: 
  Country: None (occurrence: None)
  Receive Date: 20110520
  Receipt Date: 20110511
  Transmission Date: 20111010
  Serious: Yes (Other)
  Sender: FDA-Public Use
  Company Number: US-BIOGENIDEC-2011BI014814

PATIENT
  Age: 39 Year
  Sex: Female

DRUGS (2)
  1. TYSABRI [Suspect]
     Indication: MULTIPLE SCLEROSIS
     Route: 042
     Dates: start: 20090615
  2. TYSABRI [Suspect]
     Route: 042
     Dates: start: 20070514, end: 20070514

REACTIONS (2)
  - KNEE ARTHROPLASTY [None]
  - WHITE BLOOD CELL COUNT DECREASED [None]
